FAERS Safety Report 9795028 (Version 1)
Quarter: 2014Q1

REPORT INFORMATION
  Report Type: Spontaneous
  Country: US (occurrence: US)
  Receive Date: 20140102
  Receipt Date: 20140102
  Transmission Date: 20141002
  Serious: No
  Sender: FDA-Public Use
  Company Number: US-BAXTER-2013BAX052542

PATIENT
  Sex: 0

DRUGS (2)
  1. 0.9% SODIUM CHLORIDE INJECTION, USP IN MINI-BAG PLUS CONTAINER [Suspect]
     Indication: OCCUPATIONAL EXPOSURE TO PRODUCT
     Route: 061
  2. 0.9% SODIUM CHLORIDE INJECTION, USP IN MINI-BAG PLUS CONTAINER [Suspect]
     Indication: PRODUCT USED FOR UNKNOWN INDICATION

REACTIONS (3)
  - Product container issue [Unknown]
  - Occupational exposure to product [Unknown]
  - No adverse event [Recovered/Resolved]
